FAERS Safety Report 10638004 (Version 1)
Quarter: 2014Q4

REPORT INFORMATION
  Report Type: Spontaneous
  Country: US (occurrence: None)
  Receive Date: 20141121
  Receipt Date: 20141121
  Transmission Date: 20150529
  Serious: No
  Sender: FDA-Public Use
  Company Number: 163-10004-14071444

PATIENT
  Age: 64 Year
  Sex: Female

DRUGS (5)
  1. ALEVE (NAPROXEN SODIUM) (UNKNOWN) [Concomitant]
  2. VITAMIN A (RETINOL) (UNKNOWN) [Concomitant]
  3. OTEZLA [Suspect]
     Active Substance: APREMILAST
     Indication: PSORIATIC ARTHROPATHY
     Route: 048
     Dates: start: 20140530
  4. TACLONEX (DAIVOBET) (UNKNOWN) [Concomitant]
  5. CALCIUM + D (UNKNOWN) [Concomitant]

REACTIONS (1)
  - Diarrhoea [None]
